FAERS Safety Report 11159047 (Version 1)
Quarter: 2015Q2

REPORT INFORMATION
  Report Type: Spontaneous
  Country: US (occurrence: None)
  Receive Date: 20150522
  Receipt Date: 20150522
  Transmission Date: 20150821
  Serious: Yes (Other)
  Sender: FDA-Public Use
  Company Number: 2015GMK014561

PATIENT
  Age: 44 Year
  Sex: Female

DRUGS (2)
  1. TOPIRAMATE TABLETS 100MG [Suspect]
     Active Substance: TOPIRAMATE
     Indication: MIGRAINE
     Route: 048
     Dates: end: 20150227
  2. TOPIRAMATE TABLETS 100MG [Suspect]
     Active Substance: TOPIRAMATE
     Indication: SEIZURE
     Route: 048
     Dates: end: 20150227

REACTIONS (6)
  - Product substitution issue [None]
  - Tremor [None]
  - Ulcer [None]
  - Off label use [None]
  - Seizure [None]
  - Treatment noncompliance [None]

NARRATIVE: CASE EVENT DATE: 20150227
